FAERS Safety Report 21010161 (Version 1)
Quarter: 2022Q2

REPORT INFORMATION
  Report Type: Spontaneous
  Country: US (occurrence: US)
  Receive Date: 20220627
  Receipt Date: 20220627
  Transmission Date: 20220721
  Serious: No
  Sender: FDA-Public Use
  Company Number: US-PFIZER INC-202200880032

PATIENT
  Age: 68 Year
  Sex: Female

DRUGS (2)
  1. PAXLOVID [Suspect]
     Active Substance: NIRMATRELVIR\RITONAVIR
     Indication: COVID-19 treatment
     Dosage: UNK
     Dates: start: 202206
  2. ALLEGRA [Suspect]
     Active Substance: FEXOFENADINE HYDROCHLORIDE
     Dosage: UNK

REACTIONS (3)
  - Diarrhoea [Unknown]
  - Decreased appetite [Unknown]
  - Nausea [Unknown]

NARRATIVE: CASE EVENT DATE: 20220622
